FAERS Safety Report 5245688-0 (Version None)
Quarter: 2007Q1

REPORT INFORMATION
  Report Type: 
  Country: None (occurrence: None)
  Receive Date: 20070223
  Receipt Date: 20070213
  Transmission Date: 20070707
  Serious: Yes (Other)
  Sender: FDA-Public Use
  Company Number: JP-PFIZER INC-2007012247

PATIENT
  Age: 87 Year
  Sex: Female

DRUGS (1)
  1. SULPERAZON [Suspect]
     Indication: DRUG USE FOR UNKNOWN INDICATION
     Dosage: DAILY DOSE:1.6GRAM
     Route: 042

REACTIONS (1)
  - FAECES DISCOLOURED [None]
